FAERS Safety Report 9856088 (Version 2)
Quarter: 2014Q1

REPORT INFORMATION
  Report Type: Spontaneous
  Country: US (occurrence: US)
  Receive Date: 20140130
  Receipt Date: 20140228
  Transmission Date: 20141002
  Serious: Yes (Other)
  Sender: FDA-Public Use
  Company Number: US-SA-2014SA012225

PATIENT
  Age: 74 Year
  Sex: Male
  Weight: 102 kg

DRUGS (13)
  1. LANTUS [Suspect]
     Indication: TYPE 2 DIABETES MELLITUS
     Dosage: DOSE:50 UNIT(S)
     Route: 058
  2. ATENOLOL [Concomitant]
     Indication: HYPERTENSION
     Route: 048
  3. METFORMIN [Concomitant]
     Indication: DIABETES MELLITUS
     Dosage: 1 TABLET IN MORNING WITH MEAL
     Route: 048
  4. PENTOXIFYLLINE [Concomitant]
     Indication: PERIPHERAL VASCULAR DISORDER
     Dosage: 1 TABLET THREE TIMES A DAY WITH MEAL
     Route: 048
  5. LISINOPRIL [Concomitant]
     Indication: RENAL DISORDER
     Route: 048
  6. GABAPENTIN [Concomitant]
     Indication: DIABETES MELLITUS
     Dosage: 3 TABLETS AT BEDTIME.
     Route: 048
  7. SPIRONOLACTONE [Concomitant]
     Dosage: 1 TABLET IN MORNING
     Route: 048
  8. TAMSULOSIN [Concomitant]
     Indication: PNEUMONIA
     Route: 048
  9. LEVOTHYROXINE [Concomitant]
     Dosage: 1 TABLET BEFORE BREAKFAST
     Route: 048
  10. FERROUS SULPHATE [Concomitant]
     Route: 048
  11. VITAMIN C [Concomitant]
     Route: 048
  12. VITAMIN D [Concomitant]
     Route: 048
  13. NEXIUM [Concomitant]
     Dosage: 1 TABLET BEFORE BREAKFAST
     Route: 048

REACTIONS (1)
  - Limb discomfort [Recovered/Resolved]
